FAERS Safety Report 25319371 (Version 1)
Quarter: 2025Q2

REPORT INFORMATION
  Report Type: Spontaneous
  Country: US (occurrence: None)
  Receive Date: 20250514
  Receipt Date: 20250514
  Transmission Date: 20250717
  Serious: Yes (Life-Threatening, Hospitalization)
  Sender: FDA-CTU
  Company Number: None

PATIENT
  Age: 40 Year
  Sex: Female
  Weight: 101.25 kg

DRUGS (4)
  1. DUPIXENT [Suspect]
     Active Substance: DUPILUMAB
     Indication: Asthma
     Dosage: OTHER FREQUENCY : 2X MONTH;?
     Route: 058
     Dates: start: 20250430, end: 20250430
  2. VIMPAT [Concomitant]
     Active Substance: LACOSAMIDE
  3. TOPAMAX [Concomitant]
     Active Substance: TOPIRAMATE
  4. vagus nerve stimulator [Concomitant]

REACTIONS (1)
  - Seizure [None]

NARRATIVE: CASE EVENT DATE: 20250502
